FAERS Safety Report 23990681 (Version 1)
Quarter: 2024Q2

REPORT INFORMATION
  Report Type: Spontaneous
  Country: US (occurrence: US)
  Receive Date: 20240619
  Receipt Date: 20240619
  Transmission Date: 20240716
  Serious: No
  Sender: FDA-Public Use
  Company Number: US-TEVA-VS-3208348

PATIENT
  Sex: Female
  Weight: 64.864 kg

DRUGS (13)
  1. HYDROCHLOROTHIAZIDE [Suspect]
     Active Substance: HYDROCHLOROTHIAZIDE
     Indication: Product used for unknown indication
     Route: 065
  2. LEVOTHYROXINE [Suspect]
     Active Substance: LEVOTHYROXINE\LEVOTHYROXINE SODIUM
     Indication: Product used for unknown indication
     Dosage: 75MCG WITH 50MCG EVERY DAY
     Route: 065
  3. LEVOTHYROXINE [Suspect]
     Active Substance: LEVOTHYROXINE\LEVOTHYROXINE SODIUM
     Indication: Product used for unknown indication
     Route: 065
  4. LENVIMA [Suspect]
     Active Substance: LENVATINIB
     Indication: Renal cancer
     Route: 065
     Dates: start: 20230721
  5. Low dose Aspirin EC 81mg tab DR [Concomitant]
     Indication: Product used for unknown indication
     Route: 065
  6. Vitamin D3 50mcg cap. [Concomitant]
     Indication: Product used for unknown indication
     Route: 065
  7. morphine sulfate  ER 15mg tablet SA [Concomitant]
     Indication: Product used for unknown indication
     Route: 065
  8. Hydrocodone-Acteaminophen [Concomitant]
     Indication: Product used for unknown indication
     Dosage: UNKNOWN
     Route: 065
  9. Metformin HCL ER 750mg Tab ER 24H, [Concomitant]
     Indication: Product used for unknown indication
     Route: 065
  10. Irbesartan 300mg tab [Concomitant]
     Indication: Product used for unknown indication
     Route: 065
  11. AMLODIPINE BESYLATE [Concomitant]
     Active Substance: AMLODIPINE BESYLATE
     Indication: Product used for unknown indication
     Route: 065
  12. Keytruda 100mg/4ml vial, [Concomitant]
     Indication: Product used for unknown indication
     Dosage: 100MG/4ML VIAL,
     Route: 065
  13. SIMVASTATIN [Concomitant]
     Active Substance: SIMVASTATIN
     Indication: Product used for unknown indication
     Route: 065

REACTIONS (5)
  - Blood potassium decreased [Unknown]
  - Malaise [Unknown]
  - Abdominal pain upper [Unknown]
  - Abdominal pain [Unknown]
  - Blood thyroid stimulating hormone increased [Unknown]
